FAERS Safety Report 10025726 (Version 1)
Quarter: 2014Q1

REPORT INFORMATION
  Report Type: Spontaneous
  Country: US (occurrence: US)
  Receive Date: 20140320
  Receipt Date: 20140320
  Transmission Date: 20141002
  Serious: Yes (Other)
  Sender: FDA-Public Use
  Company Number: US-ACTAVIS-2014-05081

PATIENT
  Age: 14 Year
  Sex: Male

DRUGS (6)
  1. VANCOMYCIN HCL (WATSON LABORATORIES) [Suspect]
     Indication: PRODUCT USED FOR UNKNOWN INDICATION
     Dosage: UNK
     Route: 065
  2. TACROLIMUS (WATSON LABORATORIES) [Suspect]
     Indication: IMMUNOSUPPRESSANT DRUG THERAPY
     Dosage: UNK
     Route: 065
  3. RIFAMPIN [Concomitant]
     Indication: LATENT TUBERCULOSIS
     Dosage: 10 MG/KG, UNK
     Route: 065
  4. MYCOPHENOLATE MOFETIL [Concomitant]
     Indication: IMMUNOSUPPRESSANT DRUG THERAPY
     Dosage: UNK
     Route: 065
  5. METHYLPREDNISOLONE [Concomitant]
     Indication: IMMUNOSUPPRESSANT DRUG THERAPY
     Dosage: UNK
     Route: 065
  6. KETOCONAZOLE [Concomitant]
     Indication: DRUG THERAPY ENHANCEMENT
     Dosage: UNK
     Route: 065

REACTIONS (3)
  - Renal failure acute [Not Recovered/Not Resolved]
  - Renal tubular necrosis [Not Recovered/Not Resolved]
  - Hyperkalaemia [Unknown]
